FAERS Safety Report 7643415-0 (Version None)
Quarter: 2011Q3

REPORT INFORMATION
  Report Type: 
  Country: None (occurrence: None)
  Receive Date: 20110729
  Receipt Date: 20110722
  Transmission Date: 20111222
  Serious: Yes (Other)
  Sender: FDA-Public Use
  Company Number: US-TEVA-291843USA

PATIENT
  Sex: Female

DRUGS (1)
  1. RIBAVIRIN [Suspect]

REACTIONS (1)
  - DRUG DEPENDENCE [None]
